FAERS Safety Report 18859172 (Version 1)
Quarter: 2021Q1

REPORT INFORMATION
  Report Type: Spontaneous
  Country: US (occurrence: US)
  Receive Date: 20210207
  Receipt Date: 20210207
  Transmission Date: 20210420
  Serious: No
  Sender: FDA-Public Use
  Company Number: None

PATIENT
  Age: 47 Year
  Sex: Female
  Weight: 208.8 kg

DRUGS (16)
  1. CYCLOBENZAPRINE 5 MG TAB [Suspect]
     Active Substance: CYCLOBENZAPRINE HYDROCHLORIDE
     Indication: MUSCLE SPASMS
     Dosage: ?          QUANTITY:90 TABLET(S);?
     Route: 048
     Dates: start: 20210203, end: 20210206
  2. NOVOLOG [Concomitant]
     Active Substance: INSULIN ASPART
  3. FUROSEMIDE. [Concomitant]
     Active Substance: FUROSEMIDE
  4. PLEXUS PROBIO5 [Concomitant]
  5. LEVEMIR [Concomitant]
     Active Substance: INSULIN DETEMIR
  6. MAGNESIUM [Concomitant]
     Active Substance: MAGNESIUM
  7. LOW DOSE ASPIRIN [Concomitant]
     Active Substance: ASPIRIN
  8. EZETIMIBE. [Concomitant]
     Active Substance: EZETIMIBE
  9. IRON [Concomitant]
     Active Substance: IRON
  10. LISINOPRIL. [Concomitant]
     Active Substance: LISINOPRIL
  11. METFORMIN [Concomitant]
     Active Substance: METFORMIN HYDROCHLORIDE
  12. ZYRTEC [Concomitant]
     Active Substance: CETIRIZINE HYDROCHLORIDE
  13. PLEXUS BIOCLEANSE [Concomitant]
  14. LEVOTHYROXINE. [Concomitant]
     Active Substance: LEVOTHYROXINE
  15. C?PAP MACINE [Concomitant]
  16. VITAMIN D [Concomitant]
     Active Substance: VITAMIN D NOS

REACTIONS (2)
  - Insomnia [None]
  - Heart rate irregular [None]

NARRATIVE: CASE EVENT DATE: 20210207
